FAERS Safety Report 17875538 (Version 1)
Quarter: 2020Q2

REPORT INFORMATION
  Report Type: Spontaneous
  Country: US (occurrence: US)
  Receive Date: 20200609
  Receipt Date: 20200609
  Transmission Date: 20200714
  Serious: No
  Sender: FDA-Public Use
  Company Number: US-JNJFOC-20200611115

PATIENT
  Sex: Male
  Weight: 81.72 kg

DRUGS (1)
  1. CONCERTA [Suspect]
     Active Substance: METHYLPHENIDATE HYDROCHLORIDE
     Indication: ATTENTION DEFICIT HYPERACTIVITY DISORDER
     Route: 048

REACTIONS (4)
  - Obsessive-compulsive disorder [Unknown]
  - Disturbance in attention [Unknown]
  - Anxiety [Unknown]
  - Obsessive thoughts [Unknown]
